FAERS Safety Report 15547161 (Version 1)
Quarter: 2018Q4

REPORT INFORMATION
  Report Type: Spontaneous
  Country: FR (occurrence: FR)
  Receive Date: 20181024
  Receipt Date: 20181024
  Transmission Date: 20190205
  Serious: Yes (Hospitalization)
  Sender: FDA-Public Use
  Company Number: FR-TEVA-2018-FR-967780

PATIENT
  Age: 50 Year
  Sex: Male

DRUGS (8)
  1. IKOREL 10 MG, COMPRIM? S?CABLE [Concomitant]
     Dosage: 20 MILLIGRAM DAILY;
     Route: 048
  2. SILDENAFIL. [Suspect]
     Active Substance: SILDENAFIL
     Indication: PRODUCT USED FOR UNKNOWN INDICATION
     Dosage: 50 MILLIGRAM DAILY;
     Route: 048
     Dates: start: 20180910
  3. VICTOZA [Concomitant]
     Active Substance: LIRAGLUTIDE
     Dosage: .6 MILLIGRAM DAILY;
     Route: 058
  4. TEMERIT 5 MG, COMPRIM? QUADRIS?CABLE [Concomitant]
     Active Substance: NEBIVOLOL HYDROCHLORIDE
     Route: 048
  5. COVERAM [Concomitant]
     Active Substance: AMLODIPINE\PERINDOPRIL
     Dosage: 1 DOSAGE FORMS DAILY;
     Route: 048
  6. PLAVIX [Concomitant]
     Active Substance: CLOPIDOGREL BISULFATE
     Dosage: 75 MILLIGRAM DAILY;
     Route: 048
  7. TAHOR [Concomitant]
     Active Substance: ATORVASTATIN CALCIUM
     Dosage: 10 MILLIGRAM DAILY;
     Route: 048
  8. GLUCOPHAGE 1000 MG, COMPRIM? PELLICUL? [Concomitant]
     Dosage: 2000 MILLIGRAM DAILY;
     Route: 048

REACTIONS (1)
  - Ischaemic stroke [Not Recovered/Not Resolved]

NARRATIVE: CASE EVENT DATE: 20180915
